FAERS Safety Report 5257416-3 (Version None)
Quarter: 2007Q1

REPORT INFORMATION
  Report Type: 
  Country: None (occurrence: None)
  Receive Date: 20070307
  Receipt Date: 20060831
  Transmission Date: 20070707
  Serious: No
  Sender: FDA-Public Use
  Company Number: US-GLAXOSMITHKLINE-A0613506A

PATIENT
  Age: 73 Year
  Sex: Male

DRUGS (10)
  1. REQUIP [Suspect]
     Indication: PARKINSON'S DISEASE
     Dosage: .75MG THREE TIMES PER DAY
     Route: 048
     Dates: start: 20060701
  2. SINEMET [Concomitant]
  3. LEVOTHYROXINE SODIUM [Concomitant]
  4. LOTREL [Concomitant]
  5. FUROSEMIDE [Concomitant]
  6. ASPIRIN [Concomitant]
  7. TERAZOSIN HCL [Concomitant]
  8. FINASTERIDE [Concomitant]
  9. TRAZODONE HCL [Concomitant]
  10. MULTI-VITAMIN [Concomitant]

REACTIONS (5)
  - DRUG INEFFECTIVE [None]
  - FATIGUE [None]
  - ILL-DEFINED DISORDER [None]
  - SLEEP DISORDER [None]
  - SOMNOLENCE [None]
